FAERS Safety Report 8687757 (Version 3)
Quarter: 2013Q4

REPORT INFORMATION
  Report Type: Spontaneous
  Country: US (occurrence: US)
  Receive Date: 20120727
  Receipt Date: 20131101
  Transmission Date: 20140711
  Serious: Yes (Other)
  Sender: FDA-Public Use
  Company Number: US-009507513-2012SP024788

PATIENT
  Age: 76 Year
  Sex: Male
  Weight: 63.5 kg

DRUGS (12)
  1. CLARITIN REDITABS [Suspect]
     Indication: HYPERSENSITIVITY
     Dosage: 5 MG, QD
     Route: 048
     Dates: start: 20120408, end: 20120418
  2. CLARITIN REDITABS [Suspect]
     Indication: SINUS DISORDER
  3. CLARITIN REDITABS [Suspect]
     Indication: RHINORRHOEA
  4. CLARITIN REDITABS [Suspect]
     Indication: SNEEZING
  5. FLUTICASONE PROPIONATE [Concomitant]
     Indication: ASTHMA
     Dosage: UNK UNK, UNKNOWN
  6. QVAR [Concomitant]
     Indication: ASTHMA
     Dosage: UNK UNK, UNKNOWN
  7. ZOCOR [Concomitant]
     Indication: BLOOD CHOLESTEROL
     Dosage: UNK UNK, UNKNOWN
  8. LATANOPROST [Concomitant]
     Indication: GLAUCOMA
     Dosage: UNK UNK, UNKNOWN
  9. MINERALS (UNSPECIFIED) (+) VITAMINS (UNSPECIFIED) [Concomitant]
     Indication: PRODUCT USED FOR UNKNOWN INDICATION
     Dosage: UNK UNK, UNKNOWN
  10. VITAMIN B COMPLEX [Concomitant]
     Indication: PRODUCT USED FOR UNKNOWN INDICATION
     Dosage: UNK UNK, UNKNOWN
  11. MAGNESIUM (UNSPECIFIED) [Concomitant]
     Indication: PRODUCT USED FOR UNKNOWN INDICATION
     Dosage: UNK UNK, UNKNOWN
  12. POTASSIUM GLUCONATE [Concomitant]
     Indication: PRODUCT USED FOR UNKNOWN INDICATION
     Dosage: UNK UNK, UNKNOWN

REACTIONS (3)
  - Pruritus [Recovered/Resolved]
  - Hypersensitivity [Recovered/Resolved]
  - Expired drug administered [Recovered/Resolved]
